FAERS Safety Report 4651917-4 (Version None)
Quarter: 2005Q2

REPORT INFORMATION
  Report Type: 
  Country: None (occurrence: None)
  Receive Date: 20050504
  Receipt Date: 20050114
  Transmission Date: 20051028
  Serious: Yes (Hospitalization, Other)
  Sender: FDA-Public Use
  Company Number: PHNU2005DE00563

PATIENT
  Age: 60 Year
  Sex: Female

DRUGS (8)
  1. ZOMETA [Suspect]
     Indication: OSTEOLYSIS
     Dosage: 4 MG, QMO
     Dates: start: 20010201, end: 20041201
  2. RADIOTHERAPY [Concomitant]
     Indication: RADIOTHERAPY TO BONE
  3. VINCRISTINE [Concomitant]
     Indication: PLASMACYTOMA
     Route: 065
     Dates: start: 20010301, end: 20010601
  4. IDARUBICIN HCL [Concomitant]
     Indication: PLASMACYTOMA
     Route: 065
     Dates: start: 20010301, end: 20010601
  5. DEXAMETHASONE [Concomitant]
     Indication: PLASMACYTOMA
     Route: 065
     Dates: start: 20010301, end: 20010601
  6. ENDOXAN [Concomitant]
     Indication: PLASMACYTOMA
     Route: 065
     Dates: start: 20010701
  7. MELPHALAN [Concomitant]
     Indication: PLASMACYTOMA
     Route: 065
     Dates: start: 20010901
  8. MELPHALAN [Concomitant]
     Route: 065
     Dates: start: 20020201

REACTIONS (7)
  - BONE DEBRIDEMENT [None]
  - INFLAMMATION [None]
  - OSTEONECROSIS [None]
  - PLASTIC SURGERY [None]
  - PRIMARY SEQUESTRUM [None]
  - SEQUESTRECTOMY [None]
  - TOOTH EXTRACTION [None]
